FAERS Safety Report 10185382 (Version 3)
Quarter: 2014Q2

REPORT INFORMATION
  Report Type: Spontaneous
  Country: JP (occurrence: JP)
  Receive Date: 20140521
  Receipt Date: 20140529
  Transmission Date: 20141212
  Serious: Yes (Other)
  Sender: FDA-Public Use
  Company Number: JP-SA-2014SA063887

PATIENT
  Age: 15 Year
  Sex: Female

DRUGS (2)
  1. DELLEGRA [Suspect]
     Indication: RHINITIS ALLERGIC
     Route: 048
     Dates: start: 20140510, end: 20140510
  2. ZADITEN [Concomitant]
     Indication: RHINITIS ALLERGIC
     Route: 065
     Dates: start: 20140509, end: 20140509

REACTIONS (5)
  - Infection [Unknown]
  - Oliguria [Unknown]
  - Decreased appetite [Unknown]
  - Dizziness [Unknown]
  - Urticaria [Unknown]
